FAERS Safety Report 5057299-0 (Version None)
Quarter: 2006Q3

REPORT INFORMATION
  Report Type: 
  Country: None (occurrence: None)
  Receive Date: 20060721
  Receipt Date: 20050726
  Transmission Date: 20061208
  Serious: No
  Sender: FDA-Public Use
  Company Number: US-GLAXOSMITHKLINE-A0567715A

PATIENT
  Age: 68 Year
  Sex: Female

DRUGS (3)
  1. AVANDIA [Suspect]
     Dosage: 8MG PER DAY
     Route: 048
     Dates: start: 20050721
  2. AVAPRO [Concomitant]
  3. CORGARD [Concomitant]

REACTIONS (3)
  - CHILLS [None]
  - DIZZINESS [None]
  - HEADACHE [None]
